FAERS Safety Report 24050188 (Version 3)
Quarter: 2024Q3

REPORT INFORMATION
  Report Type: Spontaneous
  Country: JP (occurrence: JP)
  Receive Date: 20240704
  Receipt Date: 20240812
  Transmission Date: 20241017
  Serious: Yes (Hospitalization, Other)
  Sender: ARDELYX
  Company Number: JP-ARDELYX-2024ARDX004518

PATIENT
  Age: 7 Decade
  Sex: Male

DRUGS (3)
  1. TENAPANOR HYDROCHLORIDE [Suspect]
     Active Substance: TENAPANOR HYDROCHLORIDE
     Indication: Hyperphosphataemia
     Dosage: 5 MILLIGRAM, TIW (3 IN WEEK), ON DIALYSIS DAYS ONLY, ONCE AFTER EACH DIALYSIS
     Route: 048
     Dates: start: 202405, end: 2024
  2. TENAPANOR HYDROCHLORIDE [Suspect]
     Active Substance: TENAPANOR HYDROCHLORIDE
     Dosage: 5 MILLIGRAM, QD
     Route: 048
     Dates: start: 202406, end: 202406
  3. TENAPANOR HYDROCHLORIDE [Suspect]
     Active Substance: TENAPANOR HYDROCHLORIDE
     Dosage: 5 MILLIGRAM, BID
     Route: 048
     Dates: start: 202406, end: 202406

REACTIONS (5)
  - Hyperkalaemia [Recovered/Resolved]
  - Hospitalisation [Unknown]
  - Dehydration [Recovered/Resolved]
  - Faeces soft [Recovered/Resolved]
  - Diarrhoea [Recovered/Resolved]

NARRATIVE: CASE EVENT DATE: 20240501
